FAERS Safety Report 16213726 (Version 3)
Quarter: 2019Q2

REPORT INFORMATION
  Report Type: Report from Study
  Country: US (occurrence: US)
  Receive Date: 20190418
  Receipt Date: 20190531
  Transmission Date: 20190711
  Serious: Yes (Hospitalization, Other)
  Sender: FDA-Public Use
  Company Number: US-GILEAD-2019-0403088

PATIENT
  Age: 71 Year
  Sex: Female
  Weight: 76.19 kg

DRUGS (3)
  1. SILDENAFIL. [Concomitant]
     Active Substance: SILDENAFIL
     Indication: PULMONARY HYPERTENSION
     Dates: start: 20180507
  2. OPSUMIT [Concomitant]
     Active Substance: MACITENTAN
     Indication: PULMONARY HYPERTENSION
     Dates: start: 20180320, end: 20181214
  3. AMBRISENTAN [Suspect]
     Active Substance: AMBRISENTAN
     Indication: PULMONARY HYPERTENSION
     Dosage: 10 MG, QD
     Route: 065
     Dates: start: 20190210

REACTIONS (9)
  - Hypotension [Unknown]
  - Cystitis [Recovered/Resolved]
  - Pneumonia [Unknown]
  - Herpes zoster [Recovered/Resolved]
  - Urinary tract infection [Unknown]
  - Rib fracture [Recovered/Resolved]
  - Fall [Recovered/Resolved]
  - Pulmonary arterial hypertension [Unknown]
  - Cardiac failure congestive [Recovered/Resolved]

NARRATIVE: CASE EVENT DATE: 20190410
